FAERS Safety Report 4585527-4 (Version None)
Quarter: 2005Q1

REPORT INFORMATION
  Report Type: 
  Country: None (occurrence: None)
  Receive Date: 20050217
  Receipt Date: 20050207
  Transmission Date: 20050727
  Serious: Yes (Hospitalization)
  Sender: FDA-Public Use
  Company Number: US-ROCHE-394882

PATIENT
  Age: 46 Year
  Sex: Female
  Weight: 55.8 kg

DRUGS (3)
  1. PEGASYS [Suspect]
     Indication: HEPATITIS C
     Dosage: STRENGTH REPORTED AS 180 MCG/0.5 ML
     Route: 058
     Dates: start: 20050121, end: 20050202
  2. COPEGUS [Suspect]
     Indication: HEPATITIS C
     Route: 048
     Dates: start: 20050121, end: 20050202
  3. MULTIVITAMIN NOS [Concomitant]
     Indication: VITAMIN SUPPLEMENTATION
     Route: 048

REACTIONS (7)
  - ASTHENIA [None]
  - CHEST PAIN [None]
  - FATIGUE [None]
  - INSOMNIA [None]
  - MONOPLEGIA [None]
  - PAIN IN EXTREMITY [None]
  - VISION BLURRED [None]
